FAERS Safety Report 6615049-8 (Version None)
Quarter: 2010Q1

REPORT INFORMATION
  Report Type: 
  Country: None (occurrence: None)
  Receive Date: 20100305
  Receipt Date: 20081202
  Transmission Date: 20100710
  Serious: No
  Sender: FDA-Public Use
  Company Number: US-BAYER-200840490NA

PATIENT
  Sex: Female

DRUGS (1)
  1. YAZ [Suspect]

REACTIONS (1)
  - WISDOM TEETH REMOVAL [None]
